FAERS Safety Report 7342561-9 (Version None)
Quarter: 2011Q1

REPORT INFORMATION
  Report Type: 
  Country: None (occurrence: None)
  Receive Date: 20110310
  Receipt Date: 20100803
  Transmission Date: 20110831
  Serious: Yes (Life-Threatening, Hospitalization, Other)
  Sender: FDA-Public Use
  Company Number: US-BAYER-200943238NA

PATIENT
  Sex: Female
  Weight: 64 kg

DRUGS (2)
  1. IBUPROFEN [Concomitant]
     Indication: PRODUCT USED FOR UNKNOWN INDICATION
     Route: 065
     Dates: start: 20000101
  2. YASMIN [Suspect]
     Indication: ORAL CONTRACEPTION
     Dosage: UNK UNK, UNK
     Route: 048
     Dates: start: 20051101, end: 20071230

REACTIONS (10)
  - PAIN IN EXTREMITY [None]
  - DEEP VEIN THROMBOSIS [None]
  - PAIN [None]
  - DIZZINESS [None]
  - PULMONARY EMBOLISM [None]
  - UNEVALUABLE EVENT [None]
  - FATIGUE [None]
  - OEDEMA PERIPHERAL [None]
  - DYSPNOEA [None]
  - ASTHENIA [None]
